FAERS Safety Report 8987002 (Version 1)
Quarter: 2012Q4

REPORT INFORMATION
  Report Type: 
  Country: GB (occurrence: GB)
  Receive Date: 20121226
  Receipt Date: 20121226
  Transmission Date: 20130627
  Serious: Yes (Disabling, Other)
  Sender: FDA-Public Use
  Company Number: GB-MYLANLABS-2012S1025682

PATIENT
  Age: 18 Year
  Sex: Female
  Weight: 79.8 kg

DRUGS (3)
  1. CITALOPRAM [Suspect]
     Indication: DEPRESSION SUICIDAL
     Route: 048
     Dates: start: 20120811
  2. CITALOPRAM [Suspect]
     Indication: DEPRESSION SUICIDAL
     Route: 048
     Dates: end: 20120822
  3. SERTRALINE [Suspect]
     Indication: ANXIETY

REACTIONS (3)
  - Anxiety disorder [Not Recovered/Not Resolved]
  - Panic attack [Unknown]
  - Panic disorder with agoraphobia [Recovered/Resolved with Sequelae]
